FAERS Safety Report 7971049-7 (Version None)
Quarter: 2011Q4

REPORT INFORMATION
  Report Type: 
  Country: None (occurrence: None)
  Receive Date: 20111212
  Receipt Date: 20111212
  Transmission Date: 20120403
  Serious: Yes (Hospitalization, Other)
  Sender: FDA-Public Use
  Company Number: None

PATIENT
  Age: 23 Year
  Sex: Female
  Weight: 60 kg

DRUGS (1)
  1. HUMIRA [Suspect]
     Route: 058

REACTIONS (4)
  - MATERNAL EXPOSURE DURING PREGNANCY [None]
  - ENDOMETRITIS [None]
  - ABORTION INFECTED [None]
  - IMMUNE SYSTEM DISORDER [None]
